FAERS Safety Report 10655276 (Version 2)
Quarter: 2019Q1

REPORT INFORMATION
  Report Type: Spontaneous
  Country: FR (occurrence: FR)
  Receive Date: 20141216
  Receipt Date: 20190305
  Transmission Date: 20190417
  Serious: Yes (Disabling)
  Sender: FDA-Public Use
  Company Number: FR-PFIZER INC-2014339628

PATIENT
  Age: 67 Year
  Sex: Male

DRUGS (16)
  1. FORLAX [Suspect]
     Active Substance: POLYETHYLENE GLYCOL 4000
     Route: 048
  2. LASILIX [Suspect]
     Active Substance: FUROSEMIDE
     Route: 048
  3. TAHOR [Suspect]
     Active Substance: ATORVASTATIN CALCIUM
     Dosage: UNK
     Route: 048
     Dates: end: 20140731
  4. CACIT D3 [Suspect]
     Active Substance: CALCIUM\CHOLECALCIFEROL
     Route: 048
  5. LEXOMIL ROCHE [Suspect]
     Active Substance: BROMAZEPAM
     Route: 048
  6. FOSAMAX [Suspect]
     Active Substance: ALENDRONATE SODIUM
     Route: 048
  7. ACTISKENAN [Concomitant]
     Active Substance: MORPHINE SULFATE
     Dosage: UNK
  8. PLAQUENIL [Suspect]
     Active Substance: HYDROXYCHLOROQUINE SULFATE
     Route: 048
  9. SKENAN [Suspect]
     Active Substance: MORPHINE SULFATE
     Route: 048
  10. CYMBALTA [Suspect]
     Active Substance: DULOXETINE HYDROCHLORIDE
     Route: 048
  11. SALAZOPYRINE [Suspect]
     Active Substance: SULFASALAZINE
     Route: 048
  12. METOJECT [Suspect]
     Active Substance: METHOTREXATE SODIUM
     Route: 058
  13. CORTANCYL [Suspect]
     Active Substance: PREDNISONE
     Route: 048
  14. AVODART [Suspect]
     Active Substance: DUTASTERIDE
     Route: 048
  15. INEXIUM [ESOMEPRAZOLE MAGNESIUM] [Suspect]
     Active Substance: ESOMEPRAZOLE MAGNESIUM
     Route: 048
  16. RIVOTRIL [Suspect]
     Active Substance: CLONAZEPAM
     Route: 048

REACTIONS (3)
  - Peripheral sensorimotor neuropathy [Unknown]
  - Gait disturbance [Unknown]
  - Polyneuropathy [Unknown]

NARRATIVE: CASE EVENT DATE: 201309
